FAERS Safety Report 5416442-1 (Version None)
Quarter: 2007Q3

REPORT INFORMATION
  Report Type: 
  Country: None (occurrence: None)
  Receive Date: 20070814
  Receipt Date: 20070802
  Transmission Date: 20080115
  Serious: Yes (Hospitalization)
  Sender: FDA-Public Use
  Company Number: 1-15186015 /MED-07161

PATIENT
  Age: 33 Year
  Sex: Male

DRUGS (3)
  1. GABAPENTIN [Suspect]
     Dosage: 3600MG DAILY, ORAL
     Route: 048
  2. PAROXETINE [Concomitant]
  3. QUETIAPINE FUMARATE [Concomitant]

REACTIONS (9)
  - AGITATION [None]
  - CONFUSIONAL STATE [None]
  - DISORIENTATION [None]
  - DRUG DEPENDENCE [None]
  - DRUG SCREEN POSITIVE [None]
  - HYPERHIDROSIS [None]
  - HYPERREFLEXIA [None]
  - TACHYCARDIA [None]
  - TREMOR [None]
